FAERS Safety Report 9200643 (Version 1)
Quarter: 2013Q1

REPORT INFORMATION
  Report Type: Spontaneous
  Country: GB (occurrence: GB)
  Receive Date: 20130330
  Receipt Date: 20130330
  Transmission Date: 20140127
  Serious: Yes (Death, Other)
  Sender: FDA-Public Use
  Company Number: GB-PFIZER INC-2007306851

PATIENT
  Age: 26 Year
  Sex: Female

DRUGS (1)
  1. IBUPROFEN [Suspect]
     Dosage: 90-130 TABLETS
     Route: 048

REACTIONS (7)
  - Overdose [Not Recovered/Not Resolved]
  - Arrhythmia [Fatal]
  - Blood pressure systolic decreased [Not Recovered/Not Resolved]
  - Haemodynamic instability [Not Recovered/Not Resolved]
  - Loss of consciousness [Not Recovered/Not Resolved]
  - Metabolic acidosis [Not Recovered/Not Resolved]
  - Renal impairment [Not Recovered/Not Resolved]
